FAERS Safety Report 7772786-X (Version None)
Quarter: 2011Q3

REPORT INFORMATION
  Report Type: 
  Country: None (occurrence: None)
  Receive Date: 20110922
  Receipt Date: 20100816
  Transmission Date: 20111222
  Serious: Yes (Other)
  Sender: FDA-Public Use
  Company Number: US-ASTRAZENECA-2007UW05563

PATIENT
  Age: 17198 Day
  Sex: Male
  Weight: 135.2 kg

DRUGS (17)
  1. SEROQUEL [Suspect]
     Indication: DEPRESSION
     Dosage: 25-150 MG DAILY
     Route: 048
     Dates: start: 19991229, end: 20070114
  2. SEROQUEL [Suspect]
     Dosage: 25-50 MG
     Route: 048
     Dates: start: 20000808
  3. EFFEXOR [Concomitant]
     Indication: DEPRESSION
  4. METHADONE HCL [Concomitant]
  5. DUETACT [Concomitant]
     Indication: HYPERGLYCAEMIA
  6. PRAVASTATIN [Concomitant]
     Indication: BLOOD CHOLESTEROL INCREASED
  7. ALLIE [Concomitant]
     Indication: OBESITY
  8. GLYBURIDE [Concomitant]
     Indication: HYPERGLYCAEMIA
  9. BUSPAR [Concomitant]
     Indication: DEPRESSION
  10. GABAPENTIN [Concomitant]
     Indication: HYPERGLYCAEMIA
  11. PRAVASTATIN [Concomitant]
     Indication: HYPERLIPIDAEMIA
  12. LEXAPRO [Concomitant]
     Dates: start: 20060301
  13. ABILIFY [Concomitant]
     Indication: DEPRESSION
  14. METFORMIN [Concomitant]
     Indication: HYPERGLYCAEMIA
  15. SEROQUEL [Suspect]
     Route: 048
     Dates: start: 20030131, end: 20060824
  16. LORTAB [Concomitant]
     Dates: start: 20020123
  17. LYRICA [Concomitant]
     Indication: HYPERGLYCAEMIA

REACTIONS (7)
  - OEDEMA PERIPHERAL [None]
  - TYPE 2 DIABETES MELLITUS [None]
  - EYE DEGENERATIVE DISORDER [None]
  - POOR PERIPHERAL CIRCULATION [None]
  - ERECTILE DYSFUNCTION [None]
  - PARAESTHESIA [None]
  - BLOOD BLISTER [None]
